FAERS Safety Report 24269474 (Version 1)
Quarter: 2024Q3

REPORT INFORMATION
  Report Type: Spontaneous
  Country: GB (occurrence: GB)
  Receive Date: 20240830
  Receipt Date: 20240830
  Transmission Date: 20241017
  Serious: Yes (Hospitalization)
  Sender: MYLAN
  Company Number: None

PATIENT
  Age: 90 Year
  Sex: Male

DRUGS (5)
  1. APIXABAN [Suspect]
     Active Substance: APIXABAN
     Indication: Product used for unknown indication
     Dosage: 2.5 MILLIGRAM, AM (ONE TO BE TAKEN TWICE A DAY- PT STATES WAS TOLD BY GP TO ONLY TAKES ONE DAILY DUE
     Route: 065
     Dates: start: 20240408
  2. SPATONE [Concomitant]
     Dosage: 25 MILLILITER, BID (BD O- NOT TRIED)
     Route: 065
  3. HYDROCORTISONE [Concomitant]
     Active Substance: HYDROCORTISONE\HYDROCORTISONE ACETATE
     Dosage: 1 DOSAGE FORM, BID (1% APPLY THINLY TWICE A DAY AS DIRECTED)
     Route: 065
     Dates: start: 20240408
  4. BISOPROLOL [Concomitant]
     Active Substance: BISOPROLOL\BISOPROLOL FUMARATE
     Dosage: 2.5 MILLIGRAM, QD
     Route: 065
     Dates: start: 20240408
  5. FERROUS SULFATE [Concomitant]
     Active Substance: FERROUS SULFATE
     Dosage: 200 MILLIGRAM, QD
     Route: 065

REACTIONS (2)
  - Epistaxis [Recovered/Resolved]
  - Off label use [Unknown]
